FAERS Safety Report 5268587-7 (Version None)
Quarter: 2007Q1

REPORT INFORMATION
  Report Type: 
  Country: None (occurrence: None)
  Receive Date: 20070313
  Receipt Date: 20070302
  Transmission Date: 20070707
  Serious: Yes (Hospitalization)
  Sender: FDA-Public Use
  Company Number: 163-21880-06081491

PATIENT
  Age: 57 Year
  Sex: Male

DRUGS (15)
  1. REVLIMID [Suspect]
     Indication: MULTIPLE MYELOMA
     Dosage: 25 MG, 1 IN 1 D, ORAL
     Route: 048
     Dates: start: 20060808
  2. AVANDIA [Suspect]
     Indication: DRUG USE FOR UNKNOWN INDICATION
  3. ZOCOR [Concomitant]
  4. OMEPRAZOLE [Concomitant]
  5. GLYBURIDE [Concomitant]
  6. DIOVAN [Concomitant]
  7. ENALAPRIL MALEATE [Concomitant]
  8. POTASSIUM CHLORIDE [Concomitant]
  9. MAGNESIUM OXIDE (MAGNESIUM OXIDE) [Concomitant]
  10. ASPIRIN [Concomitant]
  11. NOVOLIN 70/30 (HUMAN MIXTARD) [Concomitant]
  12. METOPROLOL TARTRATE [Concomitant]
  13. LASIX [Concomitant]
  14. CLONIDINE [Concomitant]
  15. LORTAB [Concomitant]

REACTIONS (12)
  - BACK PAIN [None]
  - CARDIAC FAILURE CHRONIC [None]
  - CONSTIPATION [None]
  - DYSPNOEA [None]
  - FATIGUE [None]
  - HYPERTENSION [None]
  - PAIN IN EXTREMITY [None]
  - PATHOLOGICAL FRACTURE [None]
  - PLEURAL EFFUSION [None]
  - PULMONARY OEDEMA [None]
  - PYREXIA [None]
  - UPPER RESPIRATORY TRACT INFECTION [None]
